FAERS Safety Report 21037113 (Version 1)
Quarter: 2022Q3

REPORT INFORMATION
  Report Type: Spontaneous
  Country: US (occurrence: US)
  Receive Date: 20220703
  Receipt Date: 20220703
  Transmission Date: 20221027
  Serious: No
  Sender: FDA-Public Use
  Company Number: US-GLENMARK PHARMACEUTICALS-2022GMK072098

PATIENT

DRUGS (1)
  1. MUPIROCIN [Suspect]
     Active Substance: MUPIROCIN
     Indication: Skin wound
     Dosage: UNK
     Route: 061
     Dates: end: 20220422

REACTIONS (6)
  - Pain in extremity [Unknown]
  - Sensation of blood flow [Unknown]
  - Vascular pain [Unknown]
  - Product use in unapproved indication [Unknown]
  - Erythema [Unknown]
  - Burning sensation [Unknown]
